FAERS Safety Report 7497036-3 (Version None)
Quarter: 2011Q2

REPORT INFORMATION
  Report Type: 
  Country: None (occurrence: None)
  Receive Date: 20110523
  Receipt Date: 20110510
  Transmission Date: 20111010
  Serious: Yes (Other)
  Sender: FDA-Public Use
  Company Number: PHHY2011ES38808

PATIENT
  Age: 78 Year
  Sex: Female

DRUGS (2)
  1. FOSAVANCE [Concomitant]
     Indication: SPINAL COMPRESSION FRACTURE
     Dosage: UNK
     Dates: start: 20110122
  2. AREDIA [Suspect]
     Indication: MULTIPLE MYELOMA
     Dosage: 90 MG, UNK
     Route: 042
     Dates: start: 20040617

REACTIONS (1)
  - OSTEONECROSIS OF JAW [None]
